FAERS Safety Report 5512303-8 (Version None)
Quarter: 2007Q4

REPORT INFORMATION
  Report Type: 
  Country: None (occurrence: None)
  Receive Date: 20071112
  Receipt Date: 20071001
  Transmission Date: 20080405
  Serious: No
  Sender: FDA-Public Use
  Company Number: A0685310A

PATIENT
  Age: 77 Year
  Sex: Female

DRUGS (7)
  1. VERAMYST [Suspect]
     Dosage: 2SPR PER DAY
     Route: 045
     Dates: start: 20070911, end: 20070901
  2. PHENAZOPYRIDINE HCL TAB [Suspect]
     Indication: URINARY TRACT INFECTION
     Dosage: 2TAB TWICE PER DAY
     Route: 048
     Dates: start: 20070917, end: 20070925
  3. MACROBID [Suspect]
     Indication: URINARY TRACT INFECTION
     Dosage: 1TAB TWICE PER DAY
     Route: 048
     Dates: start: 20070901, end: 20070915
  4. HYDROCHLOROTHIAZIDE [Concomitant]
  5. LISINOPRIL [Concomitant]
  6. NEXIUM [Concomitant]
  7. LEVATOL [Concomitant]

REACTIONS (2)
  - RASH [None]
  - RASH PRURITIC [None]
